FAERS Safety Report 24914564 (Version 1)
Quarter: 2025Q1

REPORT INFORMATION
  Report Type: Spontaneous
  Country: US (occurrence: US)
  Receive Date: 20250203
  Receipt Date: 20250203
  Transmission Date: 20250408
  Serious: No
  Sender: SANOFI AVENTIS
  Company Number: US-SA-2025SA029576

PATIENT
  Age: 68 Year
  Sex: Male

DRUGS (2)
  1. DUPIXENT [Suspect]
     Active Substance: DUPILUMAB
     Indication: Gout
     Route: 058
     Dates: start: 20240412, end: 20240412
  2. DUPIXENT [Suspect]
     Active Substance: DUPILUMAB
     Indication: Lung carcinoma cell type unspecified stage IV
     Dosage: 300 MG, QOW
     Route: 058
     Dates: start: 20240426

REACTIONS (1)
  - Product use in unapproved indication [Unknown]

NARRATIVE: CASE EVENT DATE: 20240412
